FAERS Safety Report 7156223-4 (Version None)
Quarter: 2010Q4

REPORT INFORMATION
  Report Type: 
  Country: None (occurrence: None)
  Receive Date: 20101214
  Receipt Date: 20101208
  Transmission Date: 20110411
  Serious: No
  Sender: FDA-Public Use
  Company Number: US-JNJFOC-20101204049

PATIENT
  Sex: Male
  Weight: 70.31 kg

DRUGS (28)
  1. SANDOZ FENTANYL TRANSDERMAL SYSTEM [Suspect]
     Indication: MUSCULOSKELETAL PAIN
     Route: 062
  2. BENICAR [Concomitant]
     Indication: CARDIAC DISORDER
     Route: 048
  3. IMDUR [Concomitant]
     Indication: CARDIAC DISORDER
     Route: 048
  4. CARDURA [Concomitant]
     Indication: CARDIAC DISORDER
     Route: 048
  5. VERAPAMIL [Concomitant]
     Indication: CARDIAC DISORDER
     Route: 048
  6. COUMADIN [Concomitant]
     Indication: ANTICOAGULANT THERAPY
     Route: 048
  7. COUMADIN [Concomitant]
     Route: 048
  8. ASPIRIN [Concomitant]
     Indication: ANTICOAGULANT THERAPY
     Route: 048
  9. ATROVENT [Concomitant]
     Indication: CHRONIC OBSTRUCTIVE PULMONARY DISEASE
     Route: 055
  10. XOPENEX [Concomitant]
     Indication: CHRONIC OBSTRUCTIVE PULMONARY DISEASE
     Route: 055
  11. FLOVENT [Concomitant]
     Indication: CHRONIC OBSTRUCTIVE PULMONARY DISEASE
     Route: 055
  12. FERROUS SULFATE [Concomitant]
     Indication: NUTRITIONAL SUPPORT
     Route: 048
  13. NIACIN [Concomitant]
     Indication: NUTRITIONAL SUPPORT
     Route: 048
  14. LOVAZA [Concomitant]
     Indication: NUTRITIONAL SUPPORT
     Route: 048
  15. PRESERVISION LUTEIN EYE VITA.+MIN.SUP.SOFTG. [Concomitant]
     Indication: NUTRITIONAL SUPPORT
     Route: 048
  16. ASCORBIC ACID [Concomitant]
     Indication: NUTRITIONAL SUPPORT
     Route: 048
  17. ZINC [Concomitant]
     Indication: NUTRITIONAL SUPPORT
     Route: 048
  18. ALLOPURINOL [Concomitant]
     Indication: GOUT
     Route: 048
  19. BUMEX [Concomitant]
     Indication: DIURETIC THERAPY
     Route: 048
  20. BUMEX [Concomitant]
     Route: 048
  21. HYDRALAZINE [Concomitant]
     Indication: NEPHROPATHY
     Route: 048
  22. MULTAQ [Concomitant]
     Indication: ATRIAL FIBRILLATION
     Route: 048
  23. SYNTHROID [Concomitant]
     Indication: HYPOTHYROIDISM
     Route: 048
  24. COD LIVER OIL [Concomitant]
     Indication: PSORIASIS
     Route: 048
  25. VITAMINE E [Concomitant]
     Indication: SKIN DISORDER
     Route: 048
  26. MELATONIN [Concomitant]
     Indication: SLEEP DISORDER
     Route: 048
  27. PRILOSEC [Concomitant]
     Indication: ILL-DEFINED DISORDER
     Route: 048
  28. EPOETIN ALFA [Concomitant]
     Indication: NEPHROPATHY
     Route: 058

REACTIONS (3)
  - APPLICATION SITE IRRITATION [None]
  - PRODUCT QUALITY ISSUE [None]
  - WRONG TECHNIQUE IN DRUG USAGE PROCESS [None]
